FAERS Safety Report 6632326-5 (Version None)
Quarter: 2010Q1

REPORT INFORMATION
  Report Type: 
  Country: None (occurrence: None)
  Receive Date: 20100312
  Receipt Date: 20100308
  Transmission Date: 20100710
  Serious: Yes (Hospitalization)
  Sender: FDA-Public Use
  Company Number: B0638165A

PATIENT
  Sex: Male

DRUGS (9)
  1. AUGMENTIN [Suspect]
     Dosage: 3G PER DAY
     Route: 065
     Dates: start: 20090804, end: 20090824
  2. PREVISCAN [Suspect]
     Dosage: 35MG PER DAY
     Route: 048
     Dates: start: 20090806, end: 20090818
  3. LOVENOX [Suspect]
     Dosage: 2UNIT TWICE PER DAY
     Route: 058
     Dates: start: 20090801, end: 20090814
  4. TAHOR [Concomitant]
     Indication: DRUG USE FOR UNKNOWN INDICATION
     Route: 065
  5. NEXIUM [Concomitant]
     Indication: DRUG USE FOR UNKNOWN INDICATION
     Route: 065
  6. DOLIPRANE [Concomitant]
     Indication: DRUG USE FOR UNKNOWN INDICATION
     Route: 065
  7. ESIDRIX [Concomitant]
     Indication: DRUG USE FOR UNKNOWN INDICATION
     Route: 065
  8. MODURETIC 5-50 [Concomitant]
     Indication: DRUG USE FOR UNKNOWN INDICATION
     Route: 065
  9. ALLOPURINOL [Concomitant]
     Indication: DRUG USE FOR UNKNOWN INDICATION
     Route: 065

REACTIONS (3)
  - INTERNATIONAL NORMALISED RATIO INCREASED [None]
  - MOTOR DYSFUNCTION [None]
  - MUSCLE HAEMORRHAGE [None]
